FAERS Safety Report 6870903-7 (Version None)
Quarter: 2010Q3

REPORT INFORMATION
  Report Type: 
  Country: None (occurrence: None)
  Receive Date: 20100723
  Receipt Date: 20100709
  Transmission Date: 20110219
  Serious: No
  Sender: FDA-Public Use
  Company Number: US-B.I. PHARMACEUTICALS,INC./RIDGEFIELD-2010-BP-07959BP

PATIENT
  Sex: Female

DRUGS (1)
  1. SPIRIVA [Suspect]
     Indication: CHRONIC OBSTRUCTIVE PULMONARY DISEASE
     Dosage: 18 MCG
     Route: 055
     Dates: start: 20100703, end: 20100707

REACTIONS (6)
  - DYSURIA [None]
  - EYE DISORDER [None]
  - OROPHARYNGEAL PAIN [None]
  - SWOLLEN TONGUE [None]
  - URINARY HESITATION [None]
  - VISION BLURRED [None]
